FAERS Safety Report 7110818-2 (Version None)
Quarter: 2010Q4

REPORT INFORMATION
  Report Type: 
  Country: None (occurrence: None)
  Receive Date: 20101116
  Receipt Date: 20101116
  Transmission Date: 20110411
  Serious: Yes (Hospitalization)
  Sender: FDA-Public Use
  Company Number: None

PATIENT
  Sex: Male
  Weight: 82.1011 kg

DRUGS (1)
  1. OXYCONTIN [Suspect]
     Indication: PAIN MANAGEMENT
     Dosage: 1 TAB TWICE DAILY PO ONE TIME
     Route: 048
     Dates: start: 20101101, end: 20101101

REACTIONS (5)
  - AGITATION [None]
  - DISORIENTATION [None]
  - DYSPNOEA [None]
  - PRODUCT FORMULATION ISSUE [None]
  - UNEVALUABLE EVENT [None]
